FAERS Safety Report 9298215 (Version 1)
Quarter: 2013Q1

REPORT INFORMATION
  Report Type: Spontaneous
  Country: US (occurrence: None)
  Receive Date: 20121227
  Receipt Date: 20121227
  Transmission Date: 20140127
  Serious: No
  Sender: FDA-Public Use
  Company Number: PHEJ2012US013101

PATIENT
  Sex: 0

DRUGS (8)
  1. AFINITOR [Suspect]
     Indication: TUBEROUS SCLEROSIS
     Route: 048
  2. TRANXENE (CLORAZEPATE PIPOTASSIUM) [Concomitant]
  3. TOPAMAX (TOPIRAMATE) [Concomitant]
  4. ABILIFY (ARIPIPRAZOLE) [Concomitant]
  5. NECON (ETHINYLESTRADIOL, NORETHISTERONE) [Concomitant]
  6. MELATONIN (MELATONIN0 [Concomitant]
  7. ZOLOFT (SERTRALINE HYDROCHLORIDE) [Concomitant]
  8. SERTRALINE (SERTRALINE) [Concomitant]

REACTIONS (5)
  - Obsessive-compulsive disorder [None]
  - Confusional state [None]
  - Dry skin [None]
  - Cough [None]
  - Diarrhoea [None]
